FAERS Safety Report 7050628-8 (Version None)
Quarter: 2010Q4

REPORT INFORMATION
  Report Type: 
  Country: None (occurrence: None)
  Receive Date: 20101018
  Receipt Date: 20101008
  Transmission Date: 20110411
  Serious: Yes (Congenital Anomaly, Other)
  Sender: FDA-Public Use
  Company Number: US-GILEAD-2010-0031637

PATIENT
  Sex: Male
  Weight: 2.345 kg

DRUGS (5)
  1. TRUVADA [Suspect]
     Indication: HIV INFECTION
     Route: 048
  2. COMBIVIR [Concomitant]
     Indication: HIV INFECTION
     Route: 048
  3. NORVIR [Concomitant]
     Indication: HIV INFECTION
     Route: 048
  4. PREZISTA [Concomitant]
     Indication: HIV INFECTION
     Route: 048
  5. METHADONE [Concomitant]

REACTIONS (2)
  - MENINGITIS ENTEROVIRAL [None]
  - POLYDACTYLY [None]
